FAERS Safety Report 4405154-9 (Version None)
Quarter: 2004Q3

REPORT INFORMATION
  Report Type: 
  Country: None (occurrence: None)
  Receive Date: 20040723
  Receipt Date: 20030714
  Transmission Date: 20050211
  Serious: Yes (Other)
  Sender: FDA-Public Use
  Company Number: US-BRISTOL-MYERS SQUIBB COMPANY-12328795

PATIENT

DRUGS (1)
  1. MAXIPIME [Suspect]

REACTIONS (1)
  - RENAL FAILURE [None]
